FAERS Safety Report 23043200 (Version 3)
Quarter: 2023Q4

REPORT INFORMATION
  Report Type: Spontaneous
  Country: US (occurrence: US)
  Receive Date: 20231009
  Receipt Date: 20231129
  Transmission Date: 20240109
  Serious: Yes (Other)
  Sender: FDA-Public Use
  Company Number: US-BRISTOL-MYERS SQUIBB COMPANY-2023-141624

PATIENT
  Age: 75 Year
  Sex: Female
  Weight: 78.47 kg

DRUGS (3)
  1. POMALYST [Suspect]
     Active Substance: POMALIDOMIDE
     Indication: Plasma cell myeloma
     Dosage: 21D OF A 28DAYS, 3 WKS ON, 1 WK OFF
     Route: 048
     Dates: start: 20230901
  2. POMALYST [Suspect]
     Active Substance: POMALIDOMIDE
     Dosage: 21D OF 28D
     Route: 048
     Dates: start: 20230912
  3. POMALYST [Suspect]
     Active Substance: POMALIDOMIDE

REACTIONS (8)
  - White blood cell count decreased [Unknown]
  - Neutropenia [Unknown]
  - Pruritus [Unknown]
  - Chest discomfort [Unknown]
  - Pyrexia [Unknown]
  - Plasmacytoma [Unknown]
  - Fatigue [Unknown]
  - Tremor [Unknown]
